FAERS Safety Report 9339115 (Version 1)
Quarter: 2013Q2

REPORT INFORMATION
  Report Type: Spontaneous
  Country: PT (occurrence: PT)
  Receive Date: 20130610
  Receipt Date: 20130610
  Transmission Date: 20140414
  Serious: Yes (Other)
  Sender: FDA-Public Use
  Company Number: PT-RANBAXY-2013R1-70097

PATIENT
  Age: 8 Year
  Sex: Male

DRUGS (1)
  1. PARACETAMOL [Suspect]
     Indication: HEADACHE
     Route: 065

REACTIONS (2)
  - Anaphylactic reaction [Recovered/Resolved]
  - Loss of consciousness [None]
